FAERS Safety Report 18142377 (Version 2)
Quarter: 2022Q4

REPORT INFORMATION
  Report Type: Spontaneous
  Country: DE (occurrence: DE)
  Receive Date: 20200813
  Receipt Date: 20221020
  Transmission Date: 20230113
  Serious: Yes (Hospitalization, Other)
  Sender: FDA-Public Use
  Company Number: DE-ADRED-05238-01

PATIENT
  Age: 85 Year
  Sex: Male

DRUGS (3)
  1. IBUPROFEN [Suspect]
     Active Substance: IBUPROFEN
     Indication: Product used for unknown indication
     Dosage: UNK (LAST 19012020, TABLETS)
     Route: 048
  2. RAMIPRIL [Suspect]
     Active Substance: RAMIPRIL
     Indication: Product used for unknown indication
     Dosage: 2.5 MILLIGRAM (1-0-1-0)
     Route: 048
  3. METOPROLOL [Concomitant]
     Active Substance: METOPROLOL
     Indication: Product used for unknown indication
     Dosage: 95 MILLIGRAM (0.5-0-0-0)
     Route: 048

REACTIONS (5)
  - Acute kidney injury [Unknown]
  - Musculoskeletal pain [Unknown]
  - Pain [Unknown]
  - Renal colic [Unknown]
  - Flank pain [Unknown]
